FAERS Safety Report 8342248-X (Version None)
Quarter: 2012Q2

REPORT INFORMATION
  Report Type: 
  Country: None (occurrence: None)
  Receive Date: 20120507
  Receipt Date: 20120430
  Transmission Date: 20120825
  Serious: Yes (Hospitalization, Other)
  Sender: FDA-Public Use
  Company Number: US-AMGEN-USASP2012027130

PATIENT
  Age: 57 Year
  Sex: Female

DRUGS (1)
  1. ENBREL [Suspect]
     Indication: RHEUMATOID ARTHRITIS
     Dosage: 25 MG, ONCE IN FIVE DAYS
     Dates: start: 20050330

REACTIONS (12)
  - CHEST PAIN [None]
  - ARTERIOVENOUS MALFORMATION [None]
  - WEIGHT INCREASED [None]
  - GLOMERULAR FILTRATION RATE DECREASED [None]
  - SKIN EXFOLIATION [None]
  - BRONCHITIS [None]
  - MUSCULOSKELETAL PAIN [None]
  - GALLBLADDER OPERATION [None]
  - BACK PAIN [None]
  - NAUSEA [None]
  - MUSCULOSKELETAL CHEST PAIN [None]
  - HYPOAESTHESIA [None]
